FAERS Safety Report 22099424 (Version 2)
Quarter: 2023Q2

REPORT INFORMATION
  Report Type: Spontaneous
  Country: US (occurrence: US)
  Receive Date: 20230315
  Receipt Date: 20230529
  Transmission Date: 20230721
  Serious: Yes (Other)
  Sender: FDA-Public Use
  Company Number: US-AMGEN-USASP2023043595

PATIENT
  Age: 69 Year
  Sex: Female

DRUGS (1)
  1. REPATHA [Suspect]
     Active Substance: EVOLOCUMAB
     Indication: Product used for unknown indication
     Dosage: UNK
     Route: 065

REACTIONS (5)
  - Knee arthroplasty [Not Recovered/Not Resolved]
  - Wrist fracture [Unknown]
  - Ankle fracture [Unknown]
  - Fall [Unknown]
  - Device use error [Unknown]

NARRATIVE: CASE EVENT DATE: 20220901
